FAERS Safety Report 25223228 (Version 1)
Quarter: 2025Q2

REPORT INFORMATION
  Report Type: Spontaneous
  Country: ES (occurrence: ES)
  Receive Date: 20250422
  Receipt Date: 20250422
  Transmission Date: 20250717
  Serious: Yes (Other)
  Sender: DR REDDYS
  Company Number: None

PATIENT

DRUGS (1)
  1. PEMETREXED [Suspect]
     Active Substance: PEMETREXED
     Indication: Neoplasm malignant

REACTIONS (1)
  - Cutaneous lupus erythematosus [Unknown]
